FAERS Safety Report 23591205 (Version 3)
Quarter: 2024Q2

REPORT INFORMATION
  Report Type: Spontaneous
  Country: IT (occurrence: IT)
  Receive Date: 20240304
  Receipt Date: 20240403
  Transmission Date: 20240715
  Serious: Yes (Other)
  Sender: FDA-Public Use
  Company Number: IT-PFIZER INC-202400055250

PATIENT
  Age: 46 Year
  Sex: Male

DRUGS (17)
  1. PIPERACILLIN SODIUM\TAZOBACTAM SODIUM [Interacting]
     Active Substance: PIPERACILLIN SODIUM\TAZOBACTAM SODIUM
     Indication: Cystic fibrosis
     Dosage: 16 G, 1X/DAY
     Route: 042
  2. PIPERACILLIN SODIUM\TAZOBACTAM SODIUM [Interacting]
     Active Substance: PIPERACILLIN SODIUM\TAZOBACTAM SODIUM
     Indication: Antibiotic therapy
  3. MEROPENEM [Interacting]
     Active Substance: MEROPENEM
     Indication: Cystic fibrosis
     Dosage: 2 G, 3X/DAY
     Route: 042
  4. MEROPENEM [Interacting]
     Active Substance: MEROPENEM
     Indication: Antibiotic therapy
  5. FOSFOMYCIN [Interacting]
     Active Substance: FOSFOMYCIN
     Indication: Cystic fibrosis
     Dosage: 16 G, 1X/DAY
  6. FOSFOMYCIN [Interacting]
     Active Substance: FOSFOMYCIN
     Indication: Antibiotic therapy
  7. SULFAMETHOXAZOLE AND TRIMETHOPRIM [Interacting]
     Active Substance: SULFAMETHOXAZOLE\TRIMETHOPRIM
     Indication: Cystic fibrosis
     Dosage: UNK, (UNTIL DAY 09)
     Route: 048
  8. SULFAMETHOXAZOLE AND TRIMETHOPRIM [Interacting]
     Active Substance: SULFAMETHOXAZOLE\TRIMETHOPRIM
     Indication: Antibiotic therapy
  9. AMIKACIN [Interacting]
     Active Substance: AMIKACIN
     Indication: Cystic fibrosis
     Dosage: 1 G, 1X/DAY
     Route: 042
  10. AMIKACIN [Interacting]
     Active Substance: AMIKACIN
     Indication: Antibiotic therapy
  11. LEVOFLOXACIN [Interacting]
     Active Substance: LEVOFLOXACIN
     Indication: Cystic fibrosis
     Dosage: 500 MG, DAILY,  INITIALLY (DAY 00)
  12. LEVOFLOXACIN [Interacting]
     Active Substance: LEVOFLOXACIN
     Indication: Antibiotic therapy
  13. CEPHALEXIN [Interacting]
     Active Substance: CEPHALEXIN
     Indication: Cystic fibrosis
     Dosage: 2 G, 3X/DAY, UNTIL 14 DAYS AFTER DISCHARGE (DAY 37)
     Route: 048
  14. CEPHALEXIN [Interacting]
     Active Substance: CEPHALEXIN
     Indication: Antibiotic therapy
  15. MYCOPHENOLATE MOFETIL [Interacting]
     Active Substance: MYCOPHENOLATE MOFETIL
     Indication: Immunosuppressant drug therapy
     Dosage: UNK
  16. MYCOPHENOLATE MOFETIL [Interacting]
     Active Substance: MYCOPHENOLATE MOFETIL
     Dosage: 500 MG + 1000 MG
  17. EVEROLIMUS [Concomitant]
     Active Substance: EVEROLIMUS
     Indication: Immunosuppressant drug therapy
     Dosage: 1.5 MG, 2X/DAY

REACTIONS (2)
  - Drug interaction [Recovered/Resolved]
  - Off label use [Unknown]
